FAERS Safety Report 9670145 (Version 2)
Quarter: 2014Q1

REPORT INFORMATION
  Report Type: Report from Study
  Country: GB (occurrence: GB)
  Receive Date: 20131105
  Receipt Date: 20140204
  Transmission Date: 20141002
  Serious: Yes (Life-Threatening, Hospitalization)
  Sender: FDA-Public Use
  Company Number: GB-ABBVIE-13P-167-1165689-00

PATIENT
  Age: 62 Year
  Sex: Male
  Weight: 79 kg

DRUGS (3)
  1. HUMIRA [Suspect]
     Indication: PSORIASIS
     Route: 058
     Dates: start: 20090512
  2. HUMIRA [Suspect]
     Route: 058
     Dates: start: 20100311
  3. SIMVASTATIN [Concomitant]
     Indication: HYPERCHOLESTEROLAEMIA
     Dates: start: 200903

REACTIONS (1)
  - Suicidal ideation [Recovered/Resolved]
